FAERS Safety Report 6133625-6 (Version None)
Quarter: 2009Q1

REPORT INFORMATION
  Report Type: 
  Country: None (occurrence: None)
  Receive Date: 20090326
  Receipt Date: 20090317
  Transmission Date: 20090719
  Serious: Yes (Death)
  Sender: FDA-Public Use
  Company Number: US-ABBOTT-09P-163-0563208-00

PATIENT
  Sex: Male
  Weight: 133.93 kg

DRUGS (4)
  1. DEPAKOTE [Suspect]
     Indication: SCHIZOAFFECTIVE DISORDER
     Route: 048
     Dates: start: 20050101, end: 20090202
  2. LITHIUM [Suspect]
     Indication: SCHIZOAFFECTIVE DISORDER
     Dosage: 3 TABS QHS
     Route: 048
     Dates: start: 20050101, end: 20090202
  3. KLONOPIN [Suspect]
     Indication: SCHIZOAFFECTIVE DISORDER
     Route: 048
     Dates: start: 20070301, end: 20090202
  4. CLOZAPINE [Suspect]
     Indication: SCHIZOAFFECTIVE DISORDER
     Route: 048
     Dates: start: 20020701, end: 20090202

REACTIONS (5)
  - CARDIO-RESPIRATORY ARREST [None]
  - DYSARTHRIA [None]
  - FALL [None]
  - LETHARGY [None]
  - PULMONARY EMBOLISM [None]
